FAERS Safety Report 9241619 (Version 1)
Quarter: 2013Q2

REPORT INFORMATION
  Report Type: Report from Study
  Country: AU (occurrence: AU)
  Receive Date: 20130419
  Receipt Date: 20130419
  Transmission Date: 20140414
  Serious: Yes (Other)
  Sender: FDA-Public Use
  Company Number: PHHY2013AU037452

PATIENT
  Age: 60 Year
  Sex: Male

DRUGS (1)
  1. CLOZAPINE [Suspect]
     Dosage: UNK

REACTIONS (3)
  - Dilatation ventricular [Unknown]
  - Electrocardiogram ST segment elevation [Unknown]
  - Electrocardiogram QT prolonged [Unknown]
